FAERS Safety Report 8950619 (Version 1)
Quarter: 2012Q4

REPORT INFORMATION
  Report Type: Spontaneous
  Country: DE (occurrence: None)
  Receive Date: 20121127
  Receipt Date: 20121127
  Transmission Date: 20130627
  Serious: Yes (Other)
  Sender: FDA-Public Use
  Company Number: GER/GER/12/0026693

PATIENT
  Sex: Male

DRUGS (6)
  1. SIMVABETA [Suspect]
     Route: 048
  2. KYTTA [Suspect]
     Route: 048
  3. RAMILICH [Suspect]
     Route: 048
  4. DICLOCIL [Suspect]
     Route: 048
  5. ALLOPURINOL [Suspect]
     Route: 048
  6. TAMSULOSIN [Suspect]
     Route: 048

REACTIONS (1)
  - Tachycardia [None]
